FAERS Safety Report 7203511-9 (Version None)
Quarter: 2010Q4

REPORT INFORMATION
  Report Type: 
  Country: None (occurrence: None)
  Receive Date: 20101230
  Receipt Date: 20101224
  Transmission Date: 20110411
  Serious: Yes (Hospitalization)
  Sender: FDA-Public Use
  Company Number: GB-BRISTOL-MYERS SQUIBB COMPANY-15460363

PATIENT
  Age: 75 Year
  Sex: Female
  Weight: 55 kg

DRUGS (23)
  1. AMIKACIN SULFATE [Suspect]
     Indication: URINARY TRACT INFECTION
     Route: 042
     Dates: start: 20101129, end: 20101203
  2. AMIKACIN SULFATE [Suspect]
     Indication: MYCOSIS FUNGOIDES
     Route: 042
     Dates: start: 20101129, end: 20101203
  3. AMIKACIN SULFATE [Suspect]
     Indication: PNEUMONIA
     Route: 042
     Dates: start: 20101129, end: 20101203
  4. AMIKACIN SULFATE [Suspect]
     Indication: CLOSTRIDIUM DIFFICILE COLITIS
     Route: 042
     Dates: start: 20101129, end: 20101203
  5. BEXAROTENE [Suspect]
     Indication: MYCOSIS FUNGOIDES
     Dosage: 13OCT2010-5NOV2010 6NOV2010 DOSE REDUCED TO 225MG
     Route: 048
     Dates: start: 20101013
  6. HYDROCORTISONE [Concomitant]
  7. EMOVATE [Concomitant]
  8. AUGMENTIN '125' [Concomitant]
     Indication: PNEUMONIA
     Route: 042
  9. TIMOLOL MALEATE [Concomitant]
  10. FOLIC ACID [Concomitant]
  11. OMEPRAZOLE [Concomitant]
  12. BETNOVATE [Concomitant]
  13. DERMOL SOL [Concomitant]
  14. PARAFFIN [Concomitant]
  15. STRONTIUM RANELATE [Concomitant]
  16. ALENDRONIC ACID [Concomitant]
  17. LEVOTHYROXINE SODIUM [Concomitant]
  18. ROSUVASTATIN [Concomitant]
  19. EZETIMIBE [Concomitant]
     Dates: start: 20101122
  20. LIQUID PARAFFIN [Concomitant]
  21. GENTAMICIN [Concomitant]
     Indication: PNEUMONIA
  22. VANCOMYCIN [Concomitant]
     Route: 048
  23. IRON [Concomitant]

REACTIONS (1)
  - NEUTROPENIA [None]
